FAERS Safety Report 7369644-1 (Version None)
Quarter: 2011Q1

REPORT INFORMATION
  Report Type: 
  Country: None (occurrence: None)
  Receive Date: 20110323
  Receipt Date: 20110318
  Transmission Date: 20110831
  Serious: Yes (Hospitalization)
  Sender: FDA-Public Use
  Company Number: FR-PFIZER INC-2010092396

PATIENT
  Age: 77 Year
  Sex: Male
  Weight: 74.8 kg

DRUGS (15)
  1. DOXORUBICIN HYDROCHLORIDE [Concomitant]
  2. VINBLASTINE [Concomitant]
  3. AMIODARONE [Concomitant]
     Dosage: 1 DF, 1X/DAY, 5 DAYS OUT OF 7
  4. PREVISCAN [Concomitant]
     Dosage: 1 DF PER DAY ALTERNATING WITH 1DF AND A QUARTER
  5. IKOREL [Concomitant]
     Dosage: 1 DF, 2X/DAY (ONE IN THE MORNINF AND ONE IN THE EVENING)
  6. AUGMENTIN '125' [Concomitant]
     Dosage: 3 DF, 3X/DAY
  7. TARDYFERON [Concomitant]
     Dosage: 1 DF, 1X/DAY, (IN THE MORNING)
  8. OMEPRAZOLE [Concomitant]
     Dosage: 1 DF, 1X/DAY, IN THE EVENING
  9. METHOTREXATE SODIUM [Concomitant]
  10. ZESTRIL [Concomitant]
     Dosage: 1 DF, 2X/DAY, IN THE MORNING AND IN THE EVENING
  11. SUNITINIB MALATE [Suspect]
     Dosage: 25 MG
     Route: 048
     Dates: start: 20090321, end: 20091117
  12. VITAMIN D [Concomitant]
     Dosage: UNK
  13. CLAMOXYL [Concomitant]
     Dosage: 2 DF, 3X/DAY
     Dates: start: 20091214
  14. DIMETANE [Concomitant]
     Dosage: 3 DF, 1X/DAY
  15. METFORMIN [Concomitant]
     Dosage: 1 DF, 3X/DAY (IN THE MORNING, IN LUNCH AND IN THE EVENING)

REACTIONS (1)
  - GENERAL PHYSICAL HEALTH DETERIORATION [None]
